FAERS Safety Report 11437508 (Version 1)
Quarter: 2015Q3

REPORT INFORMATION
  Report Type: Spontaneous
  Country: US (occurrence: US)
  Receive Date: 20150821
  Receipt Date: 20150821
  Transmission Date: 20151125
  Serious: No
  Sender: FDA-Public Use
  Company Number: US-ELI_LILLY_AND_COMPANY-US200705002472

PATIENT
  Age: 38 Year
  Sex: Female

DRUGS (3)
  1. IRON [Concomitant]
     Active Substance: IRON
     Dosage: UNK, 3/D
  2. PRENATAL VITAMINS /01549301/ [Concomitant]
     Active Substance: VITAMINS
     Dosage: UNK, UNKNOWN
  3. CYMBALTA [Suspect]
     Active Substance: DULOXETINE HYDROCHLORIDE
     Indication: DEPRESSION
     Dosage: 20 MG, 2/D
     Route: 048
     Dates: start: 20070502, end: 20070507

REACTIONS (6)
  - Dysphonia [Unknown]
  - Hallucination [Unknown]
  - Restlessness [Unknown]
  - Musculoskeletal stiffness [Unknown]
  - Feeling abnormal [Not Recovered/Not Resolved]
  - Influenza like illness [Unknown]

NARRATIVE: CASE EVENT DATE: 20070505
